FAERS Safety Report 7658451-8 (Version None)
Quarter: 2011Q3

REPORT INFORMATION
  Report Type: 
  Country: None (occurrence: None)
  Receive Date: 20110805
  Receipt Date: 20110803
  Transmission Date: 20111222
  Serious: No
  Sender: FDA-Public Use
  Company Number: US-PFIZER INC-2011156737

PATIENT
  Sex: Male
  Weight: 83.9 kg

DRUGS (4)
  1. PRISTIQ [Suspect]
     Indication: DEPRESSION
     Dosage: 50 MG, 1X/DAY
     Route: 048
     Dates: start: 20110707
  2. ZOLPIDEM [Concomitant]
     Indication: INSOMNIA
     Dosage: UNK
  3. ATENOLOL [Concomitant]
     Indication: HYPERTENSION
     Dosage: UNK
  4. XANAX [Concomitant]
     Indication: ANXIETY
     Dosage: UNK

REACTIONS (9)
  - DIARRHOEA [None]
  - NAUSEA [None]
  - INSOMNIA [None]
  - HEADACHE [None]
  - FATIGUE [None]
  - HYPERHIDROSIS [None]
  - DIZZINESS [None]
  - YAWNING [None]
  - ANXIETY [None]
